FAERS Safety Report 6382959-9 (Version None)
Quarter: 2009Q3

REPORT INFORMATION
  Report Type: 
  Country: None (occurrence: None)
  Receive Date: 20090930
  Receipt Date: 20090924
  Transmission Date: 20100115
  Serious: Yes (Other)
  Sender: FDA-Public Use
  Company Number: ES-WYE-G04017609

PATIENT
  Age: 38 Year
  Sex: Female
  Weight: 78 kg

DRUGS (3)
  1. DOBUPAL [Suspect]
     Indication: DEPRESSION
     Route: 048
     Dates: start: 20080601, end: 20090701
  2. ZYPREXA [Interacting]
     Indication: DEPRESSION
     Route: 048
     Dates: start: 20080601, end: 20090401
  3. ZYPREXA [Interacting]
     Route: 048
     Dates: start: 20090401, end: 20090701

REACTIONS (4)
  - DRUG INTERACTION [None]
  - HYPOCHROMIC ANAEMIA [None]
  - THROMBOCYTOSIS [None]
  - WEIGHT INCREASED [None]
